FAERS Safety Report 7446631-6 (Version None)
Quarter: 2011Q2

REPORT INFORMATION
  Report Type: 
  Country: None (occurrence: None)
  Receive Date: 20110429
  Receipt Date: 20110427
  Transmission Date: 20111010
  Serious: Yes (Death, Other)
  Sender: FDA-Public Use
  Company Number: US-B.I. PHARMACEUTICALS,INC./RIDGEFIELD-2011-BP-05829BP

PATIENT
  Age: 83 Year
  Sex: Female

DRUGS (7)
  1. DILTIAZEM CD [Concomitant]
  2. TRAMADOL [Concomitant]
  3. TIOTROPIUM [Concomitant]
  4. NITROGLYCERIN [Concomitant]
  5. PRADAXA [Suspect]
     Indication: ATRIAL FIBRILLATION
     Dosage: 150 MG
     Dates: start: 20110301, end: 20110405
  6. METOCLOPRAMIDE [Concomitant]
  7. LISINOPRIL [Concomitant]

REACTIONS (6)
  - DISSEMINATED INTRAVASCULAR COAGULATION [None]
  - DIVERTICULITIS [None]
  - MULTI-ORGAN FAILURE [None]
  - GASTROINTESTINAL HAEMORRHAGE [None]
  - ILEUS [None]
  - RENAL FAILURE ACUTE [None]
